FAERS Safety Report 4591568-3 (Version None)
Quarter: 2005Q1

REPORT INFORMATION
  Report Type: 
  Country: None (occurrence: None)
  Receive Date: 20050223
  Receipt Date: 20050223
  Transmission Date: 20050727
  Serious: Yes (Hospitalization)
  Sender: FDA-Public Use
  Company Number: None

PATIENT
  Age: 60 Year
  Sex: Female
  Weight: 96.7 kg

DRUGS (5)
  1. INTEGRILIN [Suspect]
     Dosage: 2 (9.0ML BOLUSES)/16 ML/HR IV
     Route: 042
     Dates: start: 20050208
  2. HEPARIN [Suspect]
     Dosage: 4.840 UNITS IV
     Route: 042
     Dates: start: 20050208
  3. MIDAZOLAM [Concomitant]
  4. FENTANYL [Concomitant]
  5. NITROGLYCERIN [Concomitant]

REACTIONS (1)
  - PUNCTURE SITE HAEMORRHAGE [None]
